FAERS Safety Report 8774064 (Version 2)
Quarter: 2012Q4

REPORT INFORMATION
  Report Type: 
  Country: GB (occurrence: GB)
  Receive Date: 20120907
  Receipt Date: 20121116
  Transmission Date: 20130627
  Serious: Yes (Other)
  Sender: FDA-Public Use
  Company Number: GB-JNJFOC-20120901085

PATIENT
  Sex: Female
  Weight: 114 kg

DRUGS (2)
  1. SIMPONI [Suspect]
     Indication: RHEUMATOID ARTHRITIS
     Route: 058
     Dates: start: 20120701
  2. SIMPONI [Suspect]
     Indication: RHEUMATOID ARTHRITIS
     Route: 058

REACTIONS (1)
  - Type 2 diabetes mellitus [Recovering/Resolving]
